FAERS Safety Report 7541743-0 (Version None)
Quarter: 2011Q2

REPORT INFORMATION
  Report Type: 
  Country: None (occurrence: None)
  Receive Date: 20110613
  Receipt Date: 20110531
  Transmission Date: 20111010
  Serious: Yes (Hospitalization, Other)
  Sender: FDA-Public Use
  Company Number: US-ELI_LILLY_AND_COMPANY-US201101004510

PATIENT
  Sex: Female

DRUGS (4)
  1. ANAESTHETICS [Concomitant]
  2. FORTEO [Suspect]
     Indication: OSTEOPOROSIS
     Dosage: 20 UG, DAILY (1/D)
     Route: 058
  3. CALCIUM CARBONATE [Concomitant]
  4. FORTEO [Suspect]
     Dosage: 20 UG, QD
     Route: 058

REACTIONS (6)
  - IMPLANTABLE DEFIBRILLATOR INSERTION [None]
  - CARDIAC DISORDER [None]
  - INJECTION SITE PAIN [None]
  - CARDIOMEGALY [None]
  - DRUG DOSE OMISSION [None]
  - BLOOD CALCIUM ABNORMAL [None]
